FAERS Safety Report 24650742 (Version 1)
Quarter: 2024Q4

REPORT INFORMATION
  Report Type: Spontaneous
  Country: CN (occurrence: CN)
  Receive Date: 20241122
  Receipt Date: 20241122
  Transmission Date: 20250115
  Serious: Yes (Other)
  Sender: CHEPLAPHARM
  Company Number: CN-CHEPLA-2024014613

PATIENT
  Age: 14 Year
  Sex: Male
  Weight: 81 kg

DRUGS (6)
  1. OLANZAPINE [Suspect]
     Active Substance: OLANZAPINE
     Indication: Schizophreniform disorder
     Route: 048
     Dates: start: 20240115
  2. OLANZAPINE [Suspect]
     Active Substance: OLANZAPINE
     Indication: Schizophreniform disorder
     Dosage: DAILY DOSE: 15 MILLIGRAM
     Route: 048
     Dates: start: 20240310
  3. OLANZAPINE [Suspect]
     Active Substance: OLANZAPINE
     Indication: Schizophreniform disorder
     Dosage: DAILY DOSE: 10 MILLIGRAM
     Route: 048
     Dates: start: 20241005
  4. OLANZAPINE [Suspect]
     Active Substance: OLANZAPINE
     Indication: Schizophreniform disorder
     Dosage: DAILY DOSE: 5 MILLIGRAM
     Route: 048
     Dates: start: 20241014
  5. RISPERIDONE [Concomitant]
     Active Substance: RISPERIDONE
     Dosage: DAILY DOSE: 2 MILLIGRAM
     Route: 048
     Dates: start: 2024
  6. RISPERIDONE [Concomitant]
     Active Substance: RISPERIDONE
     Dosage: DAILY DOSE: 3 MILLIGRAM
     Route: 048

REACTIONS (1)
  - Stereotypy [Recovered/Resolved]

NARRATIVE: CASE EVENT DATE: 20240913
